FAERS Safety Report 7918528-6 (Version None)
Quarter: 2011Q4

REPORT INFORMATION
  Report Type: 
  Country: None (occurrence: None)
  Receive Date: 20111116
  Receipt Date: 20111114
  Transmission Date: 20120403
  Serious: Yes (Other)
  Sender: FDA-Public Use
  Company Number: US-PFIZER INC-2011211485

PATIENT
  Sex: Female
  Weight: 102 kg

DRUGS (4)
  1. DILANTIN [Suspect]
     Indication: CONVULSION
     Dosage: 200 MG, 2X/DAY
     Route: 048
     Dates: start: 19990101
  2. TOPAMAX [Concomitant]
     Indication: CONVULSION
     Dosage: UNK
  3. KEPPRA [Concomitant]
     Indication: CONVULSION
     Dosage: UNK
  4. PHENOBARBITAL [Concomitant]
     Indication: CONVULSION
     Dosage: UNK

REACTIONS (5)
  - DRUG LEVEL INCREASED [None]
  - CONVULSION [None]
  - FALL [None]
  - DRUG LEVEL BELOW THERAPEUTIC [None]
  - ABDOMINAL PAIN UPPER [None]
